FAERS Safety Report 6129263-1 (Version None)
Quarter: 2009Q1

REPORT INFORMATION
  Report Type: 
  Country: None (occurrence: None)
  Receive Date: 20090324
  Receipt Date: 20090310
  Transmission Date: 20090719
  Serious: Yes (Other)
  Sender: FDA-Public Use
  Company Number: US-BAYER-200915843NA

PATIENT
  Sex: Male

DRUGS (2)
  1. CIPROFLOXACIN HCL [Suspect]
     Indication: DRUG USE FOR UNKNOWN INDICATION
  2. UROXATRAL [Suspect]
     Indication: URINARY RETENTION
     Route: 048

REACTIONS (3)
  - HEART RATE IRREGULAR [None]
  - MUSCLE INJURY [None]
  - TENDONITIS [None]
